FAERS Safety Report 10882382 (Version 2)
Quarter: 2015Q1

REPORT INFORMATION
  Report Type: Spontaneous
  Country: US (occurrence: US)
  Receive Date: 20150303
  Receipt Date: 20150331
  Transmission Date: 20150721
  Serious: No
  Sender: FDA-Public Use
  Company Number: US-009507513-1503USA001003

PATIENT
  Sex: Male
  Weight: 43.4 kg

DRUGS (2)
  1. PEGINTRON [Suspect]
     Active Substance: PEGINTERFERON ALFA-2B
     Indication: HEPATITIS C
     Dosage: 0.4 ML WEEKLY/ 80/0.5 MICROGRAM PER MILLILITER, ONCE WEEKLY
     Route: 058
     Dates: start: 20140808
  2. PEGINTRON [Suspect]
     Active Substance: PEGINTERFERON ALFA-2B
     Dosage: 0.4 ML WEEKLY
     Route: 058

REACTIONS (4)
  - Drug dose omission [Unknown]
  - Product quality issue [Unknown]
  - Drug dispensing error [Unknown]
  - No adverse event [Unknown]
